FAERS Safety Report 4640451-3 (Version None)
Quarter: 2005Q2

REPORT INFORMATION
  Report Type: 
  Country: None (occurrence: None)
  Receive Date: 20050419
  Receipt Date: 20050406
  Transmission Date: 20051028
  Serious: Yes (Other)
  Sender: FDA-Public Use
  Company Number: 2005056607

PATIENT
  Sex: Female

DRUGS (6)
  1. DILANTIN [Suspect]
     Indication: GRAND MAL CONVULSION
     Dosage: 3 IN 1 D, ORAL
     Route: 048
  2. DILANTIN [Suspect]
     Indication: PETIT MAL EPILEPSY
     Dosage: 3 IN 1 D, ORAL
     Route: 048
  3. ZARONTIN [Suspect]
     Indication: GRAND MAL CONVULSION
     Dosage: 1 IN 1 D, ORAL
     Route: 048
  4. ZARONTIN [Suspect]
     Indication: PETIT MAL EPILEPSY
     Dosage: 1 IN 1 D, ORAL
     Route: 048
  5. ALL OTHER THERAPEUTIC PRODUCTS (ALL OTHER THERAPEUTIC PRODUCTS) [Concomitant]
  6. VENLAFAXINE HCL [Concomitant]

REACTIONS (5)
  - ASTHMA [None]
  - BRONCHITIS [None]
  - DRUG EXPOSURE DURING PREGNANCY [None]
  - PANIC ATTACK [None]
  - SPINAL COLUMN STENOSIS [None]
